FAERS Safety Report 13154692 (Version 3)
Quarter: 2017Q1

REPORT INFORMATION
  Report Type: Report from Study
  Country: US (occurrence: US)
  Receive Date: 20170126
  Receipt Date: 20170303
  Transmission Date: 20170428
  Serious: Yes (Death, Other)
  Sender: FDA-Public Use
  Company Number: US-REGENERON PHARMACEUTICALS, INC.-2017-10920

PATIENT

DRUGS (3)
  1. EYLEA [Suspect]
     Active Substance: AFLIBERCEPT
     Indication: NEOVASCULAR AGE-RELATED MACULAR DEGENERATION
     Dosage: 2 MG EVERY MONTH FOR THE FIRST 3 MONTHS; RIGHT EYE (OD)
     Route: 031
     Dates: start: 20130110
  2. EYLEA [Suspect]
     Active Substance: AFLIBERCEPT
     Dosage: 2 MG ONCE EVERY 8 WEEKS; RIGHT EYE (OD)
     Route: 031
  3. EYLEA [Suspect]
     Active Substance: AFLIBERCEPT
     Dosage: Q3MOS - EVERY THREE MONTHS
     Route: 031
     Dates: end: 20160414

REACTIONS (1)
  - Death [Fatal]

NARRATIVE: CASE EVENT DATE: 20160728
